FAERS Safety Report 13027912 (Version 1)
Quarter: 2016Q4

REPORT INFORMATION
  Report Type: Spontaneous
  Country: US (occurrence: US)
  Receive Date: 20161214
  Receipt Date: 20161214
  Transmission Date: 20170207
  Serious: No
  Sender: FDA-Public Use
  Company Number: US-PFIZER INC-2016574808

PATIENT
  Sex: Female

DRUGS (7)
  1. ZANTAC [Concomitant]
     Active Substance: RANITIDINE HYDROCHLORIDE
     Dosage: 300MG, TABLET, ONCE A DAY
     Route: 048
     Dates: start: 201610
  2. JANTOVEN [Concomitant]
     Active Substance: WARFARIN SODIUM
     Indication: ARTERIAL THROMBOSIS
     Dosage: 10 MG ON TUESDAY AND THURSDAY AND 5 MG THE REST OF THE WEEK
     Route: 048
  3. LYRICA [Suspect]
     Active Substance: PREGABALIN
     Indication: NEUROPATHY PERIPHERAL
     Dosage: 300 MG, 2X/DAY
     Route: 048
     Dates: start: 2006
  4. METHADONE [Suspect]
     Active Substance: METHADONE HYDROCHLORIDE
  5. ATORVASTATIN [Concomitant]
     Active Substance: ATORVASTATIN
     Indication: BLOOD CHOLESTEROL INCREASED
     Dosage: 20MG,TABLET, ONCE A DAY
     Route: 048
     Dates: start: 201609
  6. TENORMIN [Concomitant]
     Active Substance: ATENOLOL
     Indication: HYPERTENSION
     Dosage: 100 MG, TABLET, ONCE A DAY
     Route: 048
  7. COUMADINE [Suspect]
     Active Substance: WARFARIN SODIUM

REACTIONS (1)
  - Drug screen false positive [Unknown]

NARRATIVE: CASE EVENT DATE: 20161124
